FAERS Safety Report 7752278-4 (Version None)
Quarter: 2011Q3

REPORT INFORMATION
  Report Type: 
  Country: None (occurrence: None)
  Receive Date: 20110915
  Receipt Date: 20110905
  Transmission Date: 20111222
  Serious: Yes (Other)
  Sender: FDA-Public Use
  Company Number: FR-BAYER-2011-070786

PATIENT
  Age: 46 Year
  Sex: Female
  Weight: 76 kg

DRUGS (2)
  1. MIRENA [Suspect]
     Dosage: 20 MCG/24HR, CONT
     Route: 015
     Dates: start: 20090801
  2. MIRENA [Suspect]
     Dosage: 20 MCG/24HR, CONT
     Route: 015
     Dates: start: 20040101

REACTIONS (10)
  - BILIARY CYST [None]
  - UTERINE LEIOMYOMA [None]
  - POLYCYTHAEMIA [None]
  - LIVER DISORDER [None]
  - HAEMATOCRIT INCREASED [None]
  - HEPATIC STEATOSIS [None]
  - AMENORRHOEA [None]
  - HAEMOCONCENTRATION [None]
  - HEPATOSPLENOMEGALY [None]
  - OVARIAN CYST [None]
